FAERS Safety Report 24154807 (Version 1)
Quarter: 2024Q3

REPORT INFORMATION
  Report Type: Spontaneous
  Country: GB (occurrence: GB)
  Receive Date: 20240731
  Receipt Date: 20240731
  Transmission Date: 20241017
  Serious: Yes (Other)
  Sender: NOVITIUM PHARMA
  Company Number: GB-NOVITIUMPHARMA-2024GBNVP01420

PATIENT
  Sex: Male

DRUGS (1)
  1. SILDENAFIL CITRATE [Suspect]
     Active Substance: SILDENAFIL CITRATE
     Indication: Substance use

REACTIONS (4)
  - Drug abuse [Unknown]
  - Deafness neurosensory [Recovered/Resolved]
  - Tinnitus [Recovered/Resolved]
  - Diplacusis [Recovered/Resolved]
